FAERS Safety Report 11914877 (Version 1)
Quarter: 2016Q1

REPORT INFORMATION
  Report Type: Spontaneous
  Country: IN (occurrence: IN)
  Receive Date: 20160113
  Receipt Date: 20160113
  Transmission Date: 20160526
  Serious: Yes (Death, Congenital Anomaly, Other)
  Sender: FDA-Public Use
  Company Number: IN-ARBOR PHARMACEUTICALS, LLC-IN-2016ARB000006

PATIENT

DRUGS (3)
  1. FOLIC ACID. [Concomitant]
     Active Substance: FOLIC ACID
     Indication: FOETAL EXPOSURE DURING PREGNANCY
     Dosage: 5 MG, QD
     Route: 064
  2. LAMOTRIGINE. [Suspect]
     Active Substance: LAMOTRIGINE
     Indication: FOETAL EXPOSURE DURING PREGNANCY
     Dosage: 100-300 MG, DAILY
     Route: 064
  3. CLONAZEPAM. [Suspect]
     Active Substance: CLONAZEPAM
     Indication: FOETAL EXPOSURE DURING PREGNANCY
     Dosage: 0.25-0.5 MG, DAILY
     Route: 064

REACTIONS (5)
  - Hydrocephalus [Unknown]
  - Foetal death [Fatal]
  - Ascites [Unknown]
  - Foetal exposure during pregnancy [Unknown]
  - Polydactyly [Unknown]
